FAERS Safety Report 25979191 (Version 1)
Quarter: 2025Q4

REPORT INFORMATION
  Report Type: Spontaneous
  Country: CA (occurrence: CA)
  Receive Date: 20251030
  Receipt Date: 20251030
  Transmission Date: 20260117
  Serious: Yes (Other)
  Sender: BAYER HEALTHCARE PHARMACEUTICALS INC.
  Company Number: CA-BAYER-2025A140479

PATIENT
  Sex: Male
  Weight: 93 kg

DRUGS (1)
  1. GADOBUTROL [Suspect]
     Active Substance: GADOBUTROL
     Indication: Pituitary tumour
     Dosage: 15 ML, ONCE
     Route: 042
     Dates: start: 20251017, end: 20251017

REACTIONS (3)
  - Hypoaesthesia [Recovered/Resolved]
  - Tongue pruritus [Recovered/Resolved]
  - Blood pressure increased [Recovered/Resolved]

NARRATIVE: CASE EVENT DATE: 20251017
